FAERS Safety Report 9778432 (Version 1)
Quarter: 2013Q4

REPORT INFORMATION
  Report Type: Spontaneous
  Country: US (occurrence: None)
  Receive Date: 20131219
  Receipt Date: 20131219
  Transmission Date: 20140711
  Serious: Yes (Hospitalization)
  Sender: FDA-Public Use
  Company Number: 2013-003993

PATIENT
  Sex: Female

DRUGS (1)
  1. ATELVIA [Suspect]
     Route: 048

REACTIONS (2)
  - Chest pain [None]
  - Back pain [None]
